FAERS Safety Report 14233729 (Version 2)
Quarter: 2017Q4

REPORT INFORMATION
  Report Type: Spontaneous
  Country: RO (occurrence: RO)
  Receive Date: 20171129
  Receipt Date: 20171222
  Transmission Date: 20180321
  Serious: Yes (Hospitalization, Other)
  Sender: FDA-Public Use
  Company Number: RO-BAYER-2017-228400

PATIENT
  Age: 44 Year
  Sex: Male

DRUGS (2)
  1. CLOPIDOGREL [Concomitant]
     Active Substance: CLOPIDOGREL BISULFATE
     Indication: ANTIPLATELET THERAPY
     Dosage: 75 MG, QD
     Dates: start: 2015
  2. ASPIRIN. [Suspect]
     Active Substance: ASPIRIN
     Indication: ANTIPLATELET THERAPY
     Dosage: 75 MG, QD
     Dates: start: 2017, end: 2017

REACTIONS (1)
  - Ischaemic stroke [None]

NARRATIVE: CASE EVENT DATE: 2017
